FAERS Safety Report 7714263-8 (Version None)
Quarter: 2011Q3

REPORT INFORMATION
  Report Type: 
  Country: None (occurrence: None)
  Receive Date: 20110829
  Receipt Date: 20110818
  Transmission Date: 20111222
  Serious: No
  Sender: FDA-Public Use
  Company Number: US-BIOGENIDEC-2011BI031903

PATIENT
  Sex: Female

DRUGS (2)
  1. AVONEX [Concomitant]
     Indication: MULTIPLE SCLEROSIS
     Route: 030
  2. TYSABRI [Suspect]
     Indication: MULTIPLE SCLEROSIS
     Route: 042
     Dates: start: 20100204

REACTIONS (13)
  - MUSCLE SPASTICITY [None]
  - MIXED CONNECTIVE TISSUE DISEASE [None]
  - COLITIS ULCERATIVE [None]
  - OESOPHAGEAL DISORDER [None]
  - JOINT LAXITY [None]
  - EYE HAEMORRHAGE [None]
  - DYSPNOEA [None]
  - SJOGREN'S SYNDROME [None]
  - OCULAR HYPERAEMIA [None]
  - PULMONARY FUNCTION TEST ABNORMAL [None]
  - MUSCLE SPASMS [None]
  - DECREASED IMMUNE RESPONSIVENESS [None]
  - SCLERODERMA [None]
